FAERS Safety Report 12250699 (Version 1)
Quarter: 2016Q2

REPORT INFORMATION
  Report Type: Spontaneous
  Country: US (occurrence: US)
  Receive Date: 20160410
  Receipt Date: 20160410
  Transmission Date: 20160815
  Serious: No
  Sender: FDA-Public Use
  Company Number: US-009507513-1604USA000796

PATIENT
  Age: 1 Month

DRUGS (1)
  1. PEPCID [Suspect]
     Active Substance: FAMOTIDINE
     Dosage: 5 MG/KG, TWICE DAILY

REACTIONS (2)
  - Overdose [Unknown]
  - No adverse event [Unknown]
